FAERS Safety Report 6672714-4 (Version None)
Quarter: 2010Q2

REPORT INFORMATION
  Report Type: 
  Country: None (occurrence: None)
  Receive Date: 20100408
  Receipt Date: 20100316
  Transmission Date: 20101027
  Serious: No
  Sender: FDA-Public Use
  Company Number: US-ROCHE-693038

PATIENT

DRUGS (1)
  1. TAMIFLU [Suspect]
     Indication: DRUG USE FOR UNKNOWN INDICATION
     Dosage: RECOMMENDED DOSE WAS 60 MG BUT RECEIVED 75 MG
     Route: 065

REACTIONS (2)
  - NO ADVERSE EVENT [None]
  - OVERDOSE [None]
